FAERS Safety Report 7267419-5 (Version None)
Quarter: 2011Q1

REPORT INFORMATION
  Report Type: 
  Country: None (occurrence: None)
  Receive Date: 20110201
  Receipt Date: 20110120
  Transmission Date: 20110831
  Serious: Yes (Disabling)
  Sender: FDA-Public Use
  Company Number: CH-SANOFI-AVENTIS-2011SA004155

PATIENT
  Age: 81 Year
  Sex: Female

DRUGS (7)
  1. LYRICA [Concomitant]
     Indication: PAIN
     Route: 048
  2. CYMBALTA [Concomitant]
     Route: 048
  3. LISINOPRIL [Concomitant]
     Indication: ESSENTIAL HYPERTENSION
     Route: 065
  4. ZOMETA [Suspect]
     Indication: MULTIPLE MYELOMA
     Route: 041
     Dates: start: 20081201, end: 20101117
  5. PRAVASTATIN [Concomitant]
     Route: 048
  6. CLOMETHIAZOLE [Concomitant]
     Route: 048
  7. TRIAMCORT [Suspect]
     Route: 065
     Dates: end: 20101117

REACTIONS (1)
  - OSTEONECROSIS [None]
